FAERS Safety Report 10364835 (Version 1)
Quarter: 2014Q3

REPORT INFORMATION
  Report Type: Other
  Country: IT (occurrence: IT)
  Receive Date: 20140806
  Receipt Date: 20140806
  Transmission Date: 20150326
  Serious: Yes (Other)
  Sender: FDA-Public Use
  Company Number: IT-MYLAN-2014M1000302

PATIENT

DRUGS (1)
  1. RISPERIDONE MYLAN GENERICS ITALIA [Suspect]
     Active Substance: RISPERIDONE
     Indication: COGNITIVE DISORDER
     Dosage: 5 MG DAILY
     Route: 048
     Dates: start: 20140501, end: 20140701

REACTIONS (5)
  - Obsessive thoughts [Recovering/Resolving]
  - Tic [Recovering/Resolving]
  - Irritability [Recovering/Resolving]
  - Balance disorder [Recovering/Resolving]
  - Distractibility [Recovering/Resolving]

NARRATIVE: CASE EVENT DATE: 20140605
